FAERS Safety Report 14047068 (Version 1)
Quarter: 2017Q4

REPORT INFORMATION
  Report Type: Spontaneous
  Country: US (occurrence: US)
  Receive Date: 20171005
  Receipt Date: 20171005
  Transmission Date: 20180321
  Serious: No
  Sender: FDA-Public Use
  Company Number: US-GLAXOSMITHKLINE-US2017GSK150146

PATIENT
  Sex: Female

DRUGS (1)
  1. BREO ELLIPTA [Suspect]
     Active Substance: FLUTICASONE FUROATE\VILANTEROL TRIFENATATE
     Indication: PRODUCT USED FOR UNKNOWN INDICATION
     Dosage: UNK, Z

REACTIONS (7)
  - Chest discomfort [Unknown]
  - Vision blurred [Unknown]
  - Underdose [Unknown]
  - Intentional product misuse [Unknown]
  - Upper respiratory tract infection [Unknown]
  - Condition aggravated [Unknown]
  - Palpitations [Unknown]

NARRATIVE: CASE EVENT DATE: 20170927
